FAERS Safety Report 8300366-6 (Version None)
Quarter: 2012Q2

REPORT INFORMATION
  Report Type: 
  Country: None (occurrence: None)
  Receive Date: 20120420
  Receipt Date: 20120412
  Transmission Date: 20120825
  Serious: Yes (Hospitalization)
  Sender: FDA-Public Use
  Company Number: CN-JNJFOC-20110808030

PATIENT
  Sex: Female
  Weight: 62 kg

DRUGS (1)
  1. GOLIMUMAB [Suspect]
     Indication: ANKYLOSING SPONDYLITIS
     Route: 058
     Dates: start: 20110124

REACTIONS (1)
  - OVARIAN EPITHELIAL CANCER [None]
